FAERS Safety Report 9333565 (Version 1)
Quarter: 2013Q2

REPORT INFORMATION
  Report Type: Spontaneous
  Country: US (occurrence: US)
  Receive Date: 20130606
  Receipt Date: 20130606
  Transmission Date: 20140414
  Serious: No
  Sender: FDA-Public Use
  Company Number: US-AMGEN-USASP2013028428

PATIENT
  Age: 84 Year
  Sex: Male
  Weight: 91 kg

DRUGS (2)
  1. XGEVA [Suspect]
     Indication: PROSTATE CANCER
     Dosage: 120 MG, QMO
     Route: 030
     Dates: start: 20130312
  2. TRELSTAR [Suspect]
     Indication: PROSTATE CANCER
     Dosage: UNK, Q6MO
     Dates: start: 20130312

REACTIONS (4)
  - Chest discomfort [Not Recovered/Not Resolved]
  - Pain in extremity [Recovered/Resolved]
  - Fatigue [Not Recovered/Not Resolved]
  - Dyspnoea [Not Recovered/Not Resolved]
